FAERS Safety Report 5102699-3 (Version None)
Quarter: 2006Q3

REPORT INFORMATION
  Report Type: 
  Country: None (occurrence: None)
  Receive Date: 20060912
  Receipt Date: 20060830
  Transmission Date: 20061208
  Serious: Yes (Hospitalization)
  Sender: FDA-Public Use
  Company Number: FR-JNJFOC-20060901224

PATIENT
  Age: 83 Year
  Sex: Female

DRUGS (3)
  1. ZALDIAR [Suspect]
     Indication: HIP ARTHROPLASTY
     Route: 048
  2. CIFLOX [Suspect]
     Indication: URINARY TRACT INFECTION
  3. LOVENOX [Concomitant]

REACTIONS (2)
  - LEUKOPENIA [None]
  - NEUTROPENIA [None]
